FAERS Safety Report 9230406 (Version 1)
Quarter: 2013Q1

REPORT INFORMATION
  Report Type: Spontaneous
  Country: US (occurrence: None)
  Receive Date: 20121019
  Receipt Date: 20121019
  Transmission Date: 20140127
  Serious: Yes (Hospitalization)
  Sender: FDA-Public Use
  Company Number: 2012P1011407

PATIENT
  Age: 65 Year
  Sex: Female

DRUGS (4)
  1. FENTANYL PATCH 100 MCG/HR (NO PREF. NAME) [Suspect]
     Indication: PAIN
     Dosage: 1 PATCH; Q3D; TDER
     Route: 062
     Dates: start: 201204
  2. FENTANYL PATCH 100 MCG/HR (NO PREF. NAME) [Suspect]
     Indication: ARTHRITIS
     Dosage: 1 PATCH; Q3D; TDER
     Route: 062
     Dates: start: 201204
  3. PRILOSEC [Concomitant]
  4. SUCRALFATE [Concomitant]

REACTIONS (2)
  - Asthma [None]
  - Diarrhoea [None]
